FAERS Safety Report 23982258 (Version 3)
Quarter: 2025Q3

REPORT INFORMATION
  Report Type: Report from Study
  Country: CA (occurrence: CA)
  Receive Date: 20240617
  Receipt Date: 20250909
  Transmission Date: 20251020
  Serious: Yes (Other)
  Sender: SANDOZ
  Company Number: CA-SANDOZ-SDZ2024CA040585

PATIENT
  Sex: Female

DRUGS (4)
  1. HYRIMOZ [Suspect]
     Active Substance: ADALIMUMAB-ADAZ
     Dosage: 40 MG Q 1WEEK; WEEKLY
     Route: 058
  2. HYRIMOZ [Suspect]
     Active Substance: ADALIMUMAB-ADAZ
     Dosage: 40 MG, Q2W, STARTING WK 4, EVERY TWO WEEKS
     Route: 058
  3. HYRIMOZ [Suspect]
     Active Substance: ADALIMUMAB-ADAZ
     Route: 058
  4. HYRIMOZ [Suspect]
     Active Substance: ADALIMUMAB-ADAZ
     Indication: Crohn^s disease
     Route: 058
     Dates: start: 20240116

REACTIONS (15)
  - Colitis [Unknown]
  - Stenosis [Unknown]
  - Enteritis [Unknown]
  - Pain [Unknown]
  - Presyncope [Unknown]
  - Diarrhoea [Unknown]
  - Malaise [Unknown]
  - Arthritis [Unknown]
  - Arthralgia [Unknown]
  - Fatigue [Unknown]
  - Inflammation [Unknown]
  - Abdominal pain [Unknown]
  - Therapy partial responder [Unknown]
  - Drug ineffective [Unknown]
  - Off label use [Unknown]
